FAERS Safety Report 14394092 (Version 2)
Quarter: 2024Q1

REPORT INFORMATION
  Report Type: Spontaneous
  Country: FR (occurrence: FR)
  Receive Date: 20180116
  Receipt Date: 20240326
  Transmission Date: 20240410
  Serious: Yes (Disabling)
  Sender: FDA-Public Use
  Company Number: None

PATIENT
  Age: 74 Year
  Sex: Female
  Weight: 59 kg

DRUGS (3)
  1. AMLODIPINE BESYLATE [Suspect]
     Active Substance: AMLODIPINE BESYLATE
     Indication: Hypertension
     Dosage: 5 MG,
     Route: 048
     Dates: start: 20171214
  2. ZOLPIDEM TARTRATE [Suspect]
     Active Substance: ZOLPIDEM TARTRATE
     Indication: Sleep disorder
     Dosage: 5 MG,
     Route: 048
     Dates: start: 20171207
  3. PRAZEPAM [Suspect]
     Active Substance: PRAZEPAM
     Indication: Mixed anxiety and depressive disorder
     Dosage: 10 MG
     Route: 048
     Dates: start: 20171207

REACTIONS (2)
  - Fall [Recovered/Resolved with Sequelae]
  - Humerus fracture [Recovered/Resolved]

NARRATIVE: CASE EVENT DATE: 20171215
